FAERS Safety Report 4524149-8 (Version None)
Quarter: 2004Q4

REPORT INFORMATION
  Report Type: 
  Country: None (occurrence: None)
  Receive Date: 20041209
  Receipt Date: 20041129
  Transmission Date: 20050328
  Serious: Yes (Death, Hospitalization)
  Sender: FDA-Public Use
  Company Number: 2004AP04825

PATIENT
  Age: 75 Year
  Sex: Male

DRUGS (14)
  1. IRESSA [Suspect]
     Indication: LUNG ADENOCARCINOMA
     Dosage: 250 MG DAILY PO
     Route: 048
     Dates: start: 20040809, end: 20040908
  2. IRESSA [Suspect]
     Indication: NON-SMALL CELL LUNG CANCER
     Dosage: 250 MG DAILY PO
     Route: 048
     Dates: start: 20040809, end: 20040908
  3. PREDONINE [Concomitant]
  4. STROCAIN [Concomitant]
  5. PERDIPINE-LA [Concomitant]
  6. DEPAKENE [Concomitant]
  7. ZYLORIC ^FAES^ [Concomitant]
  8. MARZULENE [Concomitant]
  9. CLEANAL [Concomitant]
  10. FERRUM ^GREEN CROSS^ [Concomitant]
  11. VEGA [Concomitant]
  12. FAMOTIDINE [Concomitant]
  13. CARBOPLATIN [Concomitant]
  14. TAXOL [Concomitant]

REACTIONS (4)
  - INTERSTITIAL LUNG DISEASE [None]
  - PLATELET COUNT DECREASED [None]
  - PYREXIA [None]
  - RHINORRHOEA [None]
